FAERS Safety Report 9255760 (Version 2)
Quarter: 2013Q2

REPORT INFORMATION
  Report Type: Spontaneous
  Country: ES (occurrence: None)
  Receive Date: 20130418
  Receipt Date: 20130508
  Transmission Date: 20140414
  Serious: Yes (Hospitalization)
  Sender: FDA-Public Use
  Company Number: NSR_01111_2013

PATIENT
  Age: 55 Year
  Sex: Female

DRUGS (1)
  1. TRAMADOL [Suspect]
     Indication: PRODUCT USED FOR UNKNOWN INDICATION

REACTIONS (18)
  - Bone pain [None]
  - Neuralgia [None]
  - Intestinal obstruction [None]
  - Constipation [None]
  - Haemorrhoids [None]
  - Treatment failure [None]
  - Inadequate analgesia [None]
  - Constipation [None]
  - Flatulence [None]
  - Spinal pain [None]
  - Metastases to spine [None]
  - Metastases to soft tissue [None]
  - Metastases to bone [None]
  - Contraindication to medical treatment [None]
  - Gastrointestinal hypomotility [None]
  - Respiratory failure [None]
  - Pneumonia [None]
  - Pulmonary haemorrhage [None]
